FAERS Safety Report 13710459 (Version 1)
Quarter: 2017Q3

REPORT INFORMATION
  Report Type: Spontaneous
  Country: US (occurrence: US)
  Receive Date: 20170703
  Receipt Date: 20170703
  Transmission Date: 20171127
  Serious: No
  Sender: FDA-Public Use
  Company Number: US-DENTSPLY PHARMACEUTICAL-2016SCDP000200

PATIENT
  Sex: Male

DRUGS (4)
  1. ARTICADENT [Suspect]
     Active Substance: ARTICAINE HYDROCHLORIDE\EPINEPHRINE BITARTRATE
     Indication: LOCAL ANAESTHESIA
     Dosage: 1 CARPULE OF 1.7ML THROUGH IANB TECHNIQUE
     Route: 004
  2. BENZOCAINE. [Concomitant]
     Active Substance: BENZOCAINE
     Indication: ANAESTHESIA
     Dosage: UNK
     Route: 061
  3. ARTICADENT [Suspect]
     Active Substance: ARTICAINE HYDROCHLORIDE\EPINEPHRINE BITARTRATE
     Dosage: 1.7ML CARPULES THROUGH BI TECHNIQUE
     Route: 004
  4. XYLOCAINE WITH EPINEPHRINE [Suspect]
     Active Substance: EPINEPHRINE BITARTRATE\LIDOCAINE HYDROCHLORIDE
     Indication: LOCAL ANAESTHESIA
     Dosage: 1 CARPULE OF 1.7ML THROUGH BI TECHNIQUE
     Route: 004

REACTIONS (1)
  - Drug ineffective [Unknown]
